FAERS Safety Report 11985106 (Version 2)
Quarter: 2016Q2

REPORT INFORMATION
  Report Type: Report from Study
  Country: JP (occurrence: JP)
  Receive Date: 20160201
  Receipt Date: 20160511
  Transmission Date: 20160815
  Serious: No
  Sender: FDA-Public Use
  Company Number: JP-EISAI MEDICAL RESEARCH-EC-2016-014021

PATIENT
  Age: 67 Year
  Sex: Female
  Weight: 61 kg

DRUGS (12)
  1. LENVIMA [Suspect]
     Active Substance: LENVATINIB
     Dates: start: 20150821, end: 20150915
  2. LENVIMA [Suspect]
     Active Substance: LENVATINIB
     Indication: PAPILLARY THYROID CANCER
     Dates: start: 20150812, end: 20150812
  3. LENVIMA [Suspect]
     Active Substance: LENVATINIB
     Dates: start: 20150813, end: 20150816
  4. LEVOTHYROXINE SODIUM. [Concomitant]
     Active Substance: LEVOTHYROXINE SODIUM
  5. PYDOXAL [Concomitant]
     Active Substance: PYRIDOXAL
  6. MYSER [Concomitant]
     Active Substance: DIFLUPREDNATE
  7. HIRUDOID [Concomitant]
     Active Substance: GLYCOSAMINOGLYCANS
  8. LENVIMA [Suspect]
     Active Substance: LENVATINIB
     Dates: start: 20150916
  9. LENVIMA [Suspect]
     Active Substance: LENVATINIB
     Dates: start: 20150817, end: 20150818
  10. LENVIMA [Suspect]
     Active Substance: LENVATINIB
     Dates: start: 20150819, end: 20150820
  11. KERATINAMIN [Concomitant]
     Active Substance: UREA
  12. NORVASC [Concomitant]
     Active Substance: AMLODIPINE BESYLATE

REACTIONS (1)
  - Hypertension [Recovered/Resolved]

NARRATIVE: CASE EVENT DATE: 20150812
